FAERS Safety Report 5634763-4 (Version None)
Quarter: 2008Q1

REPORT INFORMATION
  Report Type: 
  Country: None (occurrence: None)
  Receive Date: 20080222
  Receipt Date: 20080214
  Transmission Date: 20080703
  Serious: Yes (Hospitalization, Other)
  Sender: FDA-Public Use
  Company Number: FR-MERCK-0506FRA00117

PATIENT
  Age: 69 Year
  Sex: Female

DRUGS (10)
  1. FOSAMAX [Suspect]
     Indication: OSTEOPOROSIS
     Route: 048
     Dates: start: 20000101, end: 20020101
  2. FOSAMAX [Suspect]
     Route: 065
     Dates: start: 20020101, end: 20050609
  3. NICARDIPINE HYDROCHLORIDE [Concomitant]
     Indication: HYPERTENSION
     Route: 048
  4. HYDROCHLOROTHIAZIDE AND IRBESARTAN [Concomitant]
     Indication: HYPERTENSION
     Route: 048
  5. PREDNISONE [Concomitant]
     Indication: RHEUMATOID ARTHRITIS
     Route: 048
     Dates: start: 19950101
  6. LEFLUNOMIDE [Concomitant]
     Indication: RHEUMATOID ARTHRITIS
     Route: 048
  7. KETOPROFEN [Concomitant]
     Indication: RHEUMATOID ARTHRITIS
     Route: 048
  8. OMEPRAZOLE [Concomitant]
     Indication: PROPHYLAXIS AGAINST GASTROINTESTINAL ULCER
     Route: 048
  9. POTASSIUM (UNSPECIFIED) [Concomitant]
     Route: 048
  10. ACEPROMETAZINE MALEATE AND MEPROBAMATE [Concomitant]
     Indication: INSOMNIA
     Route: 048

REACTIONS (3)
  - OSTEOMYELITIS CHRONIC [None]
  - OSTEONECROSIS [None]
  - RHEUMATOID ARTHRITIS [None]
